FAERS Safety Report 9979166 (Version 1)
Quarter: 2014Q1

REPORT INFORMATION
  Report Type: Report from Study
  Country: US (occurrence: US)
  Receive Date: 20140306
  Receipt Date: 20140306
  Transmission Date: 20141002
  Serious: Yes (Other)
  Sender: FDA-Public Use
  Company Number: US-ABBVIE-13P-163-1173658-00

PATIENT
  Age: 68 Year
  Sex: Female
  Weight: 57.66 kg

DRUGS (5)
  1. HUMIRA [Suspect]
     Indication: RHEUMATOID ARTHRITIS
     Route: 058
     Dates: start: 200301, end: 201309
  2. HUMIRA [Suspect]
     Route: 058
     Dates: start: 20131113
  3. PLAQUENIL [Concomitant]
     Indication: RHEUMATOID ARTHRITIS
     Route: 048
  4. FOLIC ACID [Concomitant]
     Indication: VITAMIN SUPPLEMENTATION
     Route: 048
  5. PREDNISONE [Concomitant]
     Indication: RHEUMATOID ARTHRITIS
     Route: 048

REACTIONS (1)
  - Cellulitis [Recovered/Resolved]
